FAERS Safety Report 6382906-X (Version None)
Quarter: 2009Q3

REPORT INFORMATION
  Report Type: 
  Country: None (occurrence: None)
  Receive Date: 20090930
  Receipt Date: 20090916
  Transmission Date: 20100115
  Serious: Yes (Other)
  Sender: FDA-Public Use
  Company Number: PHHY2009GB39988

PATIENT
  Sex: Male

DRUGS (4)
  1. TASIGNA [Suspect]
     Indication: CHRONIC MYELOID LEUKAEMIA
     Dosage: 800 MG, UNK
  2. TASIGNA [Suspect]
     Dosage: 400 MG, UNK
  3. TASIGNA [Suspect]
     Dosage: 600 MG, UNK
  4. TASIGNA [Suspect]
     Dosage: 800 MG, UNK

REACTIONS (4)
  - PSORIASIS [None]
  - RASH [None]
  - SKIN EXFOLIATION [None]
  - STEVENS-JOHNSON SYNDROME [None]
